FAERS Safety Report 4357262-9 (Version None)
Quarter: 2004Q2

REPORT INFORMATION
  Report Type: 
  Country: None (occurrence: None)
  Receive Date: 20040507
  Receipt Date: 20040415
  Transmission Date: 20050107
  Serious: Yes (Other)
  Sender: FDA-Public Use
  Company Number: USA040465049

PATIENT
  Age: 61 Year
  Sex: Female
  Weight: 97 kg

DRUGS (6)
  1. INSULIN [Suspect]
     Indication: DIABETES MELLITUS
     Dates: start: 19780101
  2. HUMALOG [Suspect]
     Indication: DIABETES MELLITUS
     Dates: end: 20021101
  3. HUMALOG MIX 75/25 [Suspect]
     Indication: DIABETES MELLITUS
     Dates: start: 20021101
  4. ACTOS      (PIOGLITAZONE) [Concomitant]
  5. LASIX [Concomitant]
  6. AMARYL [Concomitant]

REACTIONS (10)
  - CROHN'S DISEASE [None]
  - MUSCLE DISORDER [None]
  - PHARMACEUTICAL PRODUCT COMPLAINT [None]
  - PSEUDOMONAS INFECTION [None]
  - RENAL DISORDER [None]
  - SCAR [None]
  - SEASONAL ALLERGY [None]
  - UPPER EXTREMITY MASS [None]
  - WALKING AID USER [None]
  - WEIGHT INCREASED [None]
